FAERS Safety Report 8628309 (Version 7)
Quarter: 2013Q4

REPORT INFORMATION
  Report Type: Spontaneous
  Country: GB (occurrence: GB)
  Receive Date: 20120621
  Receipt Date: 20131114
  Transmission Date: 20140711
  Serious: Yes (Other)
  Sender: FDA-Public Use
  Company Number: PHFR2012GB003490

PATIENT
  Age: 24 Year
  Sex: Male

DRUGS (3)
  1. CLOZARIL [Suspect]
     Indication: SCHIZOPHRENIA
     Dosage: 225 MG, UNK
     Route: 048
     Dates: start: 20050603, end: 20120614
  2. CLOZARIL [Suspect]
     Dosage: UNK
     Dates: start: 20130401
  3. HYOSCINE [Concomitant]
     Dosage: 600 MG, UNK
     Route: 060
     Dates: start: 20111102, end: 20120612

REACTIONS (6)
  - Infectious mononucleosis [Recovered/Resolved]
  - Malaise [Unknown]
  - Lymphocyte count increased [Recovered/Resolved]
  - Diarrhoea [Unknown]
  - Neutropenia [Recovered/Resolved]
  - Haemoglobin decreased [Unknown]
